FAERS Safety Report 8961813 (Version 7)
Quarter: 2013Q2

REPORT INFORMATION
  Report Type: Spontaneous
  Country: BE (occurrence: BE)
  Receive Date: 20121212
  Receipt Date: 20130619
  Transmission Date: 20140414
  Serious: Yes (Hospitalization)
  Sender: FDA-Public Use
  Company Number: BE-MERCK-1212BEL002725

PATIENT
  Age: 57 Year
  Sex: Female

DRUGS (4)
  1. PEGINTRON [Suspect]
     Indication: HEPATITIS C
     Dosage: 150 MICROGRAM, QW
     Dates: start: 20121127, end: 20130608
  2. REBETOL [Suspect]
     Indication: HEPATITIS C
     Dosage: TOTAL DAILY DOSE 1000MG
     Route: 048
     Dates: start: 20121127, end: 20130118
  3. REBETOL [Suspect]
     Dosage: TOTAL DAILY DOSE: 800 MG
     Route: 048
     Dates: start: 20130119, end: 20130222
  4. REBETOL [Suspect]
     Dosage: TOTAL DAILY DOSE: 400 MG
     Route: 048
     Dates: start: 20130223, end: 20130608

REACTIONS (6)
  - Ankle fracture [Recovered/Resolved]
  - Fall [Recovered/Resolved]
  - Urinary tract infection [Recovered/Resolved]
  - Fatigue [Not Recovered/Not Resolved]
  - Ageusia [Unknown]
  - Drug ineffective [Unknown]
